FAERS Safety Report 19000339 (Version 1)
Quarter: 2021Q1

REPORT INFORMATION
  Report Type: Spontaneous
  Country: JP (occurrence: JP)
  Receive Date: 20210312
  Receipt Date: 20210312
  Transmission Date: 20210420
  Serious: Yes (Hospitalization, Other)
  Sender: FDA-Public Use
  Company Number: JP-AUROBINDO-AUR-APL-2021-009606

PATIENT
  Sex: Male

DRUGS (7)
  1. ISONIAZID. [Concomitant]
     Active Substance: ISONIAZID
     Indication: PRODUCT USED FOR UNKNOWN INDICATION
     Dosage: 400 MILLIGRAM, ONCE A DAY
     Route: 048
     Dates: start: 20090630
  2. RITUXIMAB. [Suspect]
     Active Substance: RITUXIMAB
     Indication: FOLLICLE CENTRE LYMPHOMA, FOLLICULAR GRADE I, II, III STAGE III
     Dosage: 250 MILLIGRAM/SQ. METER, ONCE A DAY
     Route: 041
     Dates: start: 20090811, end: 20090811
  3. RITUXIMAB. [Suspect]
     Active Substance: RITUXIMAB
     Dosage: 250 MILLIGRAM/SQ. METER, ONCE A DAY
     Route: 041
     Dates: start: 20090819, end: 20090819
  4. ZEVALIN [Suspect]
     Active Substance: IBRITUMOMAB TIUXETAN
     Indication: FOLLICLE CENTRE LYMPHOMA, FOLLICULAR GRADE I, II, III STAGE III
     Dosage: 889 MEGABECQUEREL, ONCE A DAY
     Route: 042
     Dates: start: 20090819, end: 20090819
  5. ZEVALIN [Suspect]
     Active Substance: IBRITUMOMAB TIUXETAN
     Indication: FOLLICLE CENTRE LYMPHOMA, FOLLICULAR GRADE I, II, III STAGE III
     Dosage: 130 MEGABECQUEREL, ONCE A DAY
     Route: 042
     Dates: start: 20090811, end: 20090811
  6. SULFAMETHOXAZOLE AND TRIMETHOPRIM [Concomitant]
     Active Substance: SULFAMETHOXAZOLE\TRIMETHOPRIM
     Indication: PRODUCT USED FOR UNKNOWN INDICATION
     Dosage: 1 DOSAGE FORM, ONCE A DAY
     Route: 048
     Dates: start: 20090630
  7. MECOBALAMIN [Concomitant]
     Active Substance: METHYLCOBALAMIN
     Indication: PRODUCT USED FOR UNKNOWN INDICATION
     Dosage: 1500 MICROGRAM, ONCE A DAY
     Route: 048
     Dates: start: 20090630

REACTIONS (4)
  - White blood cell count decreased [Recovered/Resolved]
  - Ileus [Recovered/Resolved]
  - Abdominal pain [Unknown]
  - Platelet count decreased [Not Recovered/Not Resolved]

NARRATIVE: CASE EVENT DATE: 20090911
